FAERS Safety Report 5164279-3 (Version None)
Quarter: 2006Q4

REPORT INFORMATION
  Report Type: 
  Country: None (occurrence: None)
  Receive Date: 20061128
  Receipt Date: 20061128
  Transmission Date: 20070319
  Serious: Yes (Death)
  Sender: FDA-Public Use
  Company Number: None

PATIENT
  Age: 58 Year
  Sex: Female
  Weight: 49.8957 kg

DRUGS (17)
  1. OXALIPLATIN [Suspect]
     Indication: SMALL CELL LUNG CANCER STAGE UNSPECIFIED
     Dosage: 136 MG   Q3W  IV
     Route: 042
     Dates: start: 20061011
  2. OXALIPLATIN [Suspect]
     Indication: SMALL CELL LUNG CANCER STAGE UNSPECIFIED
     Dosage: 136 MG   Q3W  IV
     Route: 042
     Dates: start: 20061101
  3. IRINOTECAN HCL [Suspect]
     Indication: SMALL CELL LUNG CANCER STAGE UNSPECIFIED
     Dosage: 240 MG  Q3W  IV
     Route: 042
     Dates: start: 20061011
  4. IRINOTECAN HCL [Suspect]
     Indication: SMALL CELL LUNG CANCER STAGE UNSPECIFIED
     Dosage: 240 MG  Q3W  IV
     Route: 042
     Dates: start: 20061101
  5. NEULASTA [Concomitant]
  6. ZOFRAN [Concomitant]
  7. PHENERGAN [Concomitant]
  8. LOPERAMIDE HCL [Concomitant]
  9. COMBIVENT [Concomitant]
  10. DIOVAN [Concomitant]
  11. PRILOSEC [Concomitant]
  12. LORTAB [Concomitant]
  13. TOPROL-XL [Concomitant]
  14. MULTI-VITAMIN [Concomitant]
  15. LASIX [Concomitant]
  16. POTASSIUM CHLORIDE [Concomitant]
  17. LEXAPRO [Concomitant]

REACTIONS (1)
  - GENERAL PHYSICAL HEALTH DETERIORATION [None]
